FAERS Safety Report 5623076-2 (Version None)
Quarter: 2008Q1

REPORT INFORMATION
  Report Type: 
  Country: None (occurrence: None)
  Receive Date: 20080212
  Receipt Date: 20080206
  Transmission Date: 20080703
  Serious: Yes (Death)
  Sender: FDA-Public Use
  Company Number: PHBS2007JP11832

PATIENT
  Age: 4 Year
  Sex: Female

DRUGS (7)
  1. SIMULECT [Suspect]
     Indication: ORGAN TRANSPLANT
     Dosage: 10 MG, UNK
     Route: 042
     Dates: start: 20070518, end: 20070518
  2. SIMULECT [Suspect]
     Dosage: 10 MG, UNK
     Route: 042
     Dates: start: 20070522, end: 20070522
  3. PROGRAF [Suspect]
     Indication: ORGAN TRANSPLANT
     Route: 048
  4. CELLCEPT [Suspect]
     Indication: ORGAN TRANSPLANT
     Route: 048
  5. METHYLPREDNISOLONE [Suspect]
     Indication: ORGAN TRANSPLANT
     Route: 048
  6. RITUXAN [Concomitant]
     Dosage: 300 MG, UNK
  7. PLASMAPHERESIS [Concomitant]

REACTIONS (2)
  - MULTI-ORGAN FAILURE [None]
  - SEPSIS [None]
